FAERS Safety Report 8581778-2 (Version None)
Quarter: 2012Q3

REPORT INFORMATION
  Report Type: 
  Country: None (occurrence: None)
  Receive Date: 20120809
  Receipt Date: 20120803
  Transmission Date: 20120928
  Serious: Yes (Other)
  Sender: FDA-Public Use
  Company Number: PHHY2012JP068233

PATIENT

DRUGS (1)
  1. NEORAL [Suspect]
     Indication: PRURIGO
     Route: 048

REACTIONS (4)
  - OEDEMA PERIPHERAL [None]
  - VENOUS THROMBOSIS [None]
  - FIBRIN D DIMER INCREASED [None]
  - ERYTHEMA [None]
